FAERS Safety Report 21566904 (Version 1)
Quarter: 2022Q4

REPORT INFORMATION
  Report Type: Spontaneous
  Country: IL (occurrence: IL)
  Receive Date: 20221108
  Receipt Date: 20221108
  Transmission Date: 20230113
  Serious: Yes (Other)
  Sender: FDA-Public Use
  Company Number: IL-AstraZeneca-2022A360646

PATIENT
  Age: 40 Year
  Sex: Male

DRUGS (1)
  1. TRASTUZUMAB DERUXTECAN [Suspect]
     Active Substance: TRASTUZUMAB DERUXTECAN
     Indication: Gastric cancer
     Dosage: 6.4 MG/KG, ONCE EVERY 3 WK
     Route: 042
     Dates: start: 20220901, end: 20221001

REACTIONS (3)
  - Tumour marker increased [Not Recovered/Not Resolved]
  - Nausea [Not Recovered/Not Resolved]
  - Fatigue [Not Recovered/Not Resolved]

NARRATIVE: CASE EVENT DATE: 20220903
